FAERS Safety Report 10264455 (Version 2)
Quarter: 2014Q4

REPORT INFORMATION
  Report Type: Spontaneous
  Country: JP (occurrence: JP)
  Receive Date: 20140627
  Receipt Date: 20141031
  Transmission Date: 20150528
  Serious: Yes (Hospitalization)
  Sender: FDA-Public Use
  Company Number: JP-BAYER-2014-092750

PATIENT
  Age: 37 Year
  Sex: Female
  Weight: 50 kg

DRUGS (4)
  1. STIVARGA [Suspect]
     Active Substance: REGORAFENIB
     Indication: COLON CANCER
     Dosage: 120 MG, QD
     Route: 048
     Dates: start: 20140129, end: 20140416
  2. STIVARGA [Suspect]
     Active Substance: REGORAFENIB
     Indication: COLON CANCER
     Dosage: 160 MG, QD (2 WEEKS ON AND 1 WEEK OFF)
     Route: 048
     Dates: start: 20140108, end: 20140121
  3. PROTECADIN [Concomitant]
     Active Substance: LAFUTIDINE
     Dosage: DAILY DOSE 20 MG
     Route: 048
  4. CELECOXIB. [Concomitant]
     Active Substance: CELECOXIB
     Dosage: DAILY DOSE 400 MG
     Route: 048

REACTIONS (1)
  - Pancreatitis acute [Recovered/Resolved]

NARRATIVE: CASE EVENT DATE: 20140422
